FAERS Safety Report 15267308 (Version 1)
Quarter: 2018Q3

REPORT INFORMATION
  Report Type: Spontaneous
  Country: US (occurrence: US)
  Receive Date: 20180724
  Receipt Date: 20180724
  Transmission Date: 20181010
  Serious: Yes (Death, Hospitalization)
  Sender: FDA-Public Use
  Company Number: None

PATIENT
  Age: 51 Year
  Sex: Male
  Weight: 99.79 kg

DRUGS (12)
  1. BENZONATATE. [Concomitant]
     Active Substance: BENZONATATE
  2. XARELTO [Suspect]
     Active Substance: RIVAROXABAN
     Indication: DEEP VEIN THROMBOSIS
     Dosage: ?          QUANTITY:2 DF DOSAGE FORM;?
     Route: 048
     Dates: start: 20160629, end: 20171207
  3. TIZANIDINE. [Concomitant]
     Active Substance: TIZANIDINE
  4. MUCUS ER [Concomitant]
     Active Substance: GUAIFENESIN
  5. XARELTO [Suspect]
     Active Substance: RIVAROXABAN
     Indication: PULMONARY EMBOLISM
     Dosage: ?          QUANTITY:2 DF DOSAGE FORM;?
     Route: 048
     Dates: start: 20160629, end: 20171207
  6. LEVOFLOXACIN. [Concomitant]
     Active Substance: LEVOFLOXACIN
  7. OXYCODONE [Concomitant]
     Active Substance: OXYCODONE
  8. XARELTO [Suspect]
     Active Substance: RIVAROXABAN
     Indication: THROMBOSIS
     Dosage: ?          QUANTITY:2 DF DOSAGE FORM;?
     Route: 048
     Dates: start: 20160629, end: 20171207
  9. GABAPENTIN. [Concomitant]
     Active Substance: GABAPENTIN
  10. GUAIFENESIN DM [Concomitant]
     Active Substance: DEXTROMETHORPHAN\DEXTROMETHORPHAN HYDROBROMIDE\GUAIFENESIN
  11. ALPRAZOLAM. [Concomitant]
     Active Substance: ALPRAZOLAM
  12. OMEPRAZOLE. [Concomitant]
     Active Substance: OMEPRAZOLE

REACTIONS (4)
  - Thrombosis [None]
  - Myocardial infarction [None]
  - Therapy cessation [None]
  - Cardiac arrest [None]

NARRATIVE: CASE EVENT DATE: 20170115
